FAERS Safety Report 13024496 (Version 9)
Quarter: 2018Q3

REPORT INFORMATION
  Report Type: Spontaneous
  Country: US (occurrence: US)
  Receive Date: 20161213
  Receipt Date: 20180808
  Transmission Date: 20181010
  Serious: Yes (Hospitalization)
  Sender: FDA-Public Use
  Company Number: US-ACTELION-A-US2016-146719

PATIENT
  Age: 58 Year
  Sex: Female
  Weight: 99.77 kg

DRUGS (6)
  1. TRACLEER [Suspect]
     Active Substance: BOSENTAN
     Dosage: 125 MG, BID
     Route: 048
  2. TYVASO [Concomitant]
     Active Substance: TREPROSTINIL
  3. ADEMPAS [Concomitant]
     Active Substance: RIOCIGUAT
  4. TRACLEER [Suspect]
     Active Substance: BOSENTAN
     Indication: PULMONARY ARTERIAL HYPERTENSION
     Dosage: 125 MG, BID
     Route: 048
     Dates: start: 20100422
  5. REVATIO [Concomitant]
     Active Substance: SILDENAFIL CITRATE
  6. ELIQUIS [Concomitant]
     Active Substance: APIXABAN

REACTIONS (14)
  - Nausea [Unknown]
  - Dyspnoea [Unknown]
  - Pulmonary hypertension [Unknown]
  - Vomiting [Unknown]
  - Adverse event [Unknown]
  - Chronic obstructive pulmonary disease [Unknown]
  - Anxiety [Unknown]
  - Hypersensitivity [Unknown]
  - Migraine [Unknown]
  - Headache [Unknown]
  - Stress [Unknown]
  - Seasonal allergy [Unknown]
  - Feeling abnormal [Unknown]
  - Intervertebral disc protrusion [Unknown]
